FAERS Safety Report 25079263 (Version 4)
Quarter: 2025Q2

REPORT INFORMATION
  Report Type: Spontaneous
  Country: US (occurrence: US)
  Receive Date: 20250314
  Receipt Date: 20250507
  Transmission Date: 20250717
  Serious: Yes (Other)
  Sender: PFIZER
  Company Number: US-PFIZER INC-202500054653

PATIENT
  Age: 47 Year
  Sex: Female
  Weight: 123.81 kg

DRUGS (2)
  1. ESTRING [Suspect]
     Active Substance: ESTRADIOL
     Indication: Menopause
     Dosage: 7.5 UG, EVERY 3 MONTHS (7.5MCG FOR 24 HOURS; EVERY 3 MONTHS. RING)
     Route: 067
     Dates: start: 2024
  2. ESTRING [Suspect]
     Active Substance: ESTRADIOL
     Indication: Oestrogen replacement therapy

REACTIONS (1)
  - Hysterectomy [Unknown]
